FAERS Safety Report 8487992-9 (Version None)
Quarter: 2012Q3

REPORT INFORMATION
  Report Type: 
  Country: None (occurrence: None)
  Receive Date: 20120705
  Receipt Date: 20120701
  Transmission Date: 20120928
  Serious: Yes (Other)
  Sender: FDA-Public Use
  Company Number: PHHY2012MX056951

PATIENT
  Sex: Male

DRUGS (2)
  1. DEPAKENE [Concomitant]
     Dosage: 6 ML AT MORNING AND 6.5 ML AT NIGHT
     Dates: start: 20110901
  2. RITALIN [Suspect]
     Indication: ATTENTION DEFICIT/HYPERACTIVITY DISORDER
     Dosage: 1 DF, QD
     Dates: start: 20120323

REACTIONS (2)
  - COUGH [None]
  - BRONCHITIS [None]
